FAERS Safety Report 21722740 (Version 1)
Quarter: 2022Q4

REPORT INFORMATION
  Report Type: Spontaneous
  Country: RU (occurrence: RU)
  Receive Date: 20221213
  Receipt Date: 20221213
  Transmission Date: 20230112
  Serious: Yes (Other)
  Sender: FDA-Public Use
  Company Number: RU-BAYER-2022P028870

PATIENT
  Sex: Female

DRUGS (1)
  1. ANGELIQ [Suspect]
     Active Substance: DROSPIRENONE\ESTRADIOL
     Indication: Hormone replacement therapy

REACTIONS (2)
  - Hot flush [Recovered/Resolved]
  - Vascular pain [Recovered/Resolved]
